FAERS Safety Report 4755441-X (Version None)
Quarter: 2005Q3

REPORT INFORMATION
  Report Type: 
  Country: None (occurrence: None)
  Receive Date: 20050826
  Receipt Date: 20050826
  Transmission Date: 20060218
  Serious: Yes (Life-Threatening, Hospitalization)
  Sender: FDA-Public Use
  Company Number: None

PATIENT
  Age: 52 Year
  Sex: Female
  Weight: 51.5 kg

DRUGS (30)
  1. HUMATE-P [Suspect]
     Indication: VON WILLEBRAND'S DISEASE
     Dosage: 100 UNITS/KG EVERY 12 HOURS IV
     Route: 042
     Dates: start: 20050322, end: 20050325
  2. HUMATE-P [Suspect]
     Indication: VON WILLEBRAND'S DISEASE
     Dosage: 100 UNITS/KG EVERY 12 HOURS IV
     Route: 042
     Dates: start: 20050328, end: 20050330
  3. HUMATE-P [Suspect]
     Indication: VON WILLEBRAND'S DISEASE
     Dosage: 100 UNITS/KG EVERY 12 HOURS IV
     Route: 042
     Dates: start: 20050404, end: 20050407
  4. HUMATE-P [Suspect]
  5. HUMATE-P [Suspect]
  6. HUMATE-P [Suspect]
  7. HUMATE-P [Suspect]
  8. HUMATE-P [Suspect]
  9. FACTOR 7A [Concomitant]
  10. FUROSEMIDE [Concomitant]
  11. FENTANYL [Concomitant]
  12. HYDROCORTISONE [Concomitant]
  13. FAMOTIDINE [Concomitant]
  14. IVIG INJECTION [Concomitant]
  15. AMINOCAPROIC ACID [Concomitant]
  16. MIDAZOLAM [Concomitant]
  17. DIPHENHYDRAMINE HCL [Concomitant]
  18. LEVOFLOXACIN [Concomitant]
  19. PREMARIN [Concomitant]
  20. LANSOPRAZOLE [Concomitant]
  21. METOCLOPRAMIDE [Concomitant]
  22. TRAZODONE [Concomitant]
  23. PREDNISONE TAB [Concomitant]
  24. METOPROLOL [Concomitant]
  25. ACETAMINOPHEN [Concomitant]
  26. CALCIUM GLUCONATE [Concomitant]
  27. MEPERIDINE [Concomitant]
  28. HYDRALAZINE [Concomitant]
  29. MORPHINE [Concomitant]
  30. EPINEPHRINE [Concomitant]

REACTIONS (3)
  - IDIOPATHIC THROMBOCYTOPENIC PURPURA [None]
  - THROMBOCYTOPENIA [None]
  - TRANSFUSION REACTION [None]
